FAERS Safety Report 8247587-9 (Version None)
Quarter: 2012Q1

REPORT INFORMATION
  Report Type: 
  Country: None (occurrence: None)
  Receive Date: 20120330
  Receipt Date: 20120321
  Transmission Date: 20120608
  Serious: Yes (Other)
  Sender: FDA-Public Use
  Company Number: PHHY2012US026891

PATIENT

DRUGS (3)
  1. AMBIEN CR [Suspect]
  2. AMBIEN [Suspect]
  3. ZOLPIDEM [Suspect]

REACTIONS (1)
  - POISONING [None]
